FAERS Safety Report 7659293-X (Version None)
Quarter: 2011Q3

REPORT INFORMATION
  Report Type: 
  Country: None (occurrence: None)
  Receive Date: 20110802
  Receipt Date: 20110725
  Transmission Date: 20111222
  Serious: Yes (Death, Hospitalization, Other)
  Sender: FDA-Public Use
  Company Number: 2011001398

PATIENT
  Age: 77 Year
  Sex: Male

DRUGS (2)
  1. TARCEVA [Suspect]
     Indication: LUNG CARCINOMA CELL TYPE UNSPECIFIED STAGE 0
     Dosage: 150 MG, UID/QD, ORAL
     Route: 048
     Dates: start: 20110308
  2. OXYGEN (OXYGEN) [Concomitant]

REACTIONS (19)
  - CONFUSIONAL STATE [None]
  - MUSCLE ATROPHY [None]
  - FALL [None]
  - LIVER FUNCTION TEST ABNORMAL [None]
  - DYSPEPSIA [None]
  - CEREBRAL SMALL VESSEL ISCHAEMIC DISEASE [None]
  - CEREBRAL HYGROMA [None]
  - DIABETIC KETOACIDOSIS [None]
  - CEREBRAL HAEMATOMA [None]
  - NAUSEA [None]
  - ASPARTATE AMINOTRANSFERASE INCREASED [None]
  - PNEUMONIA [None]
  - ANXIETY [None]
  - BLOOD BILIRUBIN INCREASED [None]
  - MICROCYTIC ANAEMIA [None]
  - ALANINE AMINOTRANSFERASE INCREASED [None]
  - NASAL DISCOMFORT [None]
  - OEDEMA PERIPHERAL [None]
  - NEOPLASM MALIGNANT [None]
